FAERS Safety Report 17411329 (Version 22)
Quarter: 2022Q3

REPORT INFORMATION
  Report Type: Report from Study
  Country: US (occurrence: US)
  Receive Date: 20200212
  Receipt Date: 20220720
  Transmission Date: 20221027
  Serious: Yes (Other)
  Sender: FDA-Public Use
  Company Number: NVSC2020US038930

PATIENT
  Age: 47 Year
  Sex: Female

DRUGS (5)
  1. COSENTYX [Suspect]
     Active Substance: SECUKINUMAB
     Indication: Psoriasis
     Dosage: 300 MG, QW
     Route: 058
  2. COSENTYX [Suspect]
     Active Substance: SECUKINUMAB
     Indication: Psoriatic arthropathy
     Dosage: UNK
     Route: 065
     Dates: start: 20211206
  3. COSENTYX [Suspect]
     Active Substance: SECUKINUMAB
     Dosage: 300 MG, QMO
     Route: 058
  4. METHOTREXATE [Concomitant]
     Active Substance: METHOTREXATE
     Indication: Product used for unknown indication
     Dosage: UNK
     Route: 065
  5. LACTASE [Concomitant]
     Active Substance: LACTASE
     Indication: Product used for unknown indication
     Dosage: UNK
     Route: 065

REACTIONS (42)
  - Bipolar disorder [Unknown]
  - Somnolence [Unknown]
  - Stress [Recovering/Resolving]
  - Depression [Recovering/Resolving]
  - Arthralgia [Recovered/Resolved with Sequelae]
  - Symptom recurrence [Recovered/Resolved with Sequelae]
  - Rash [Recovered/Resolved with Sequelae]
  - Injection site pain [Recovered/Resolved]
  - Injection site paraesthesia [Unknown]
  - Injection site bruising [Unknown]
  - Injection site hypoaesthesia [Unknown]
  - Sleep disorder [Unknown]
  - Vomiting [Unknown]
  - Hernia [Unknown]
  - Liver function test increased [Unknown]
  - Chills [Unknown]
  - Injection site pain [Unknown]
  - Injection site reaction [Unknown]
  - Hyperhidrosis [Unknown]
  - Dizziness [Unknown]
  - Injection site mass [Unknown]
  - Illness [Unknown]
  - Herpes zoster [Unknown]
  - Headache [Unknown]
  - Hepatic enzyme increased [Unknown]
  - Nausea [Unknown]
  - Chest pain [Unknown]
  - Injection site haematoma [Unknown]
  - Weight decreased [Unknown]
  - Accident [Unknown]
  - Peripheral swelling [Unknown]
  - Erythema [Unknown]
  - Anxiety [Unknown]
  - Back pain [Unknown]
  - Malaise [Unknown]
  - Localised infection [Unknown]
  - Lipoma [Unknown]
  - Crying [Unknown]
  - Infection [Unknown]
  - Injection site haemorrhage [Unknown]
  - Wrong technique in product usage process [Unknown]
  - Drug ineffective [Unknown]

NARRATIVE: CASE EVENT DATE: 20200204
